FAERS Safety Report 8189254-6 (Version None)
Quarter: 2012Q1

REPORT INFORMATION
  Report Type: 
  Country: None (occurrence: None)
  Receive Date: 20120307
  Receipt Date: 20120224
  Transmission Date: 20120608
  Serious: Yes (Hospitalization)
  Sender: FDA-Public Use
  Company Number: CA-ELI_LILLY_AND_COMPANY-CA201201007054

PATIENT
  Age: 94 Year
  Sex: Female
  Weight: 49 kg

DRUGS (9)
  1. FORTEO [Suspect]
     Indication: OSTEOPOROSIS
     Dosage: 20 UG, QD
     Route: 058
     Dates: end: 20120121
  2. PANTOPRAZOLE SODIUM [Concomitant]
  3. ATENOLOL [Concomitant]
     Dosage: 20 MG, QD
  4. ZOPICLONE [Concomitant]
  5. VITAMIN D [Concomitant]
  6. CALCIUM [Concomitant]
  7. RAMIPRIL [Concomitant]
  8. ASPIRIN [Concomitant]
     Dosage: 81 MG, UNK
  9. ADALAT [Concomitant]
     Dosage: 20 MG, QD

REACTIONS (1)
  - TRANSIENT ISCHAEMIC ATTACK [None]
